FAERS Safety Report 6188662-2 (Version None)
Quarter: 2009Q2

REPORT INFORMATION
  Report Type: 
  Country: None (occurrence: None)
  Receive Date: 20090513
  Receipt Date: 20090505
  Transmission Date: 20091009
  Serious: Yes (Other)
  Sender: FDA-Public Use
  Company Number: US-AVENTIS-200817626US

PATIENT
  Sex: Female
  Weight: 72.73 kg

DRUGS (9)
  1. KETEK [Suspect]
     Indication: BRONCHITIS
     Route: 048
     Dates: start: 20070221
  2. FLEXERIL [Concomitant]
     Dosage: DOSE: UNK
     Dates: start: 20070201
  3. LEVAQUIN [Concomitant]
     Dosage: DOSE: UNK
     Dates: start: 20070201
  4. CYCLOBENZAPRINE [Concomitant]
     Dosage: DOSE: UNK
  5. NAPROSYN [Concomitant]
     Dosage: DOSE: UNK
     Dates: start: 20070221
  6. OPIUM ALKALOIDS AND DERIVATIVES [Concomitant]
     Dosage: DOSE: UNK
     Dates: start: 20070221
  7. KEFLEX [Concomitant]
     Dosage: DOSE: UNK
     Dates: start: 20070223
  8. AZITHROMYCIN [Concomitant]
     Dosage: DOSE: UNK
  9. AMOXICILLIN [Concomitant]
     Dosage: DOSE: UNK

REACTIONS (14)
  - ABDOMINAL PAIN UPPER [None]
  - ALANINE AMINOTRANSFERASE INCREASED [None]
  - ASPARTATE AMINOTRANSFERASE INCREASED [None]
  - BLOOD ALKALINE PHOSPHATASE INCREASED [None]
  - CHROMATURIA [None]
  - EYE MOVEMENT DISORDER [None]
  - FATIGUE [None]
  - LIVER FUNCTION TEST ABNORMAL [None]
  - MALAISE [None]
  - MUSCULOSKELETAL CHEST PAIN [None]
  - NAUSEA [None]
  - PRURITUS [None]
  - RASH MACULO-PAPULAR [None]
  - TUNNEL VISION [None]
